FAERS Safety Report 8986237 (Version 4)
Quarter: 2013Q1

REPORT INFORMATION
  Report Type: Report from Study
  Country: NO (occurrence: NO)
  Receive Date: 20121226
  Receipt Date: 20130325
  Transmission Date: 20140127
  Serious: Yes (Hospitalization, Other)
  Sender: FDA-Public Use
  Company Number: NO-TEVA-377668USA

PATIENT
  Age: 70 Year
  Sex: Male

DRUGS (17)
  1. TREANDA [Suspect]
     Indication: MANTLE CELL LYMPHOMA
     Dosage: UID/QD
     Route: 042
     Dates: start: 20120802, end: 20120803
  2. TREANDA [Suspect]
     Dosage: UID/QD
     Route: 042
     Dates: start: 20120829, end: 20120829
  3. TREANDA [Suspect]
     Dosage: UID/QD
     Route: 042
     Dates: start: 20120926, end: 20120927
  4. TREANDA [Suspect]
     Dosage: UID/QD
     Route: 042
     Dates: start: 20121024, end: 20121025
  5. RITUXIMAB [Suspect]
     Indication: MANTLE CELL LYMPHOMA
     Dosage: CYCLICALLY
     Route: 042
     Dates: start: 20120912
  6. LENALIDOMIDE [Suspect]
     Indication: MANTLE CELL LYMPHOMA
     Dosage: UID/QD
     Route: 048
     Dates: start: 20120829, end: 20120911
  7. LENALIDOMIDE [Suspect]
     Dosage: UID/QD
     Route: 048
     Dates: start: 20120926, end: 20121009
  8. LENALIDOMIDE [Suspect]
     Dosage: UID/QD
     Route: 048
     Dates: start: 20121024, end: 20121106
  9. PREDNISOLONE [Suspect]
     Indication: MANTLE CELL LYMPHOMA
     Dosage: 40 MILLIGRAM DAILY;
     Route: 048
     Dates: start: 20120829, end: 20120911
  10. PREDNISOLONE [Suspect]
     Dosage: 40 MILLIGRAM DAILY;
     Route: 048
     Dates: start: 20120926, end: 20121009
  11. ALLOPURINOL [Suspect]
  12. PARACETAMOL [Concomitant]
     Indication: PREMEDICATION
     Route: 048
  13. CETIRIZINE [Concomitant]
     Indication: PREMEDICATION
     Route: 048
  14. HYDROCORTISONE [Concomitant]
     Indication: PREMEDICATION
     Route: 042
  15. ONDANSETRON [Concomitant]
     Indication: PREMEDICATION
     Route: 048
  16. COTRIM FORTE [Concomitant]
     Dates: start: 20120731, end: 20121121
  17. FUROSEMIDE [Concomitant]
     Dosage: 1 OR 2 TABLETS DAILY
     Dates: start: 20121002

REACTIONS (3)
  - General physical health deterioration [Recovered/Resolved]
  - Neutropenia [Recovered/Resolved]
  - Infection [Unknown]
